FAERS Safety Report 7631778-1 (Version None)
Quarter: 2011Q3

REPORT INFORMATION
  Report Type: 
  Country: None (occurrence: None)
  Receive Date: 20110725
  Receipt Date: 20110315
  Transmission Date: 20111222
  Serious: No
  Sender: FDA-Public Use
  Company Number: US-BRISTOL-MYERS SQUIBB COMPANY-15609076

PATIENT
  Age: 61 Year
  Sex: Female

DRUGS (5)
  1. COUMADIN [Suspect]
     Dates: start: 20110301
  2. LOVENOX [Concomitant]
  3. PROVERA [Concomitant]
  4. LOTREL [Concomitant]
  5. TOPAMAX [Concomitant]

REACTIONS (3)
  - NAUSEA [None]
  - BACK PAIN [None]
  - DIARRHOEA [None]
